FAERS Safety Report 9689061 (Version 1)
Quarter: 2013Q4

REPORT INFORMATION
  Report Type: Spontaneous
  Country: CH (occurrence: CH)
  Receive Date: 20131114
  Receipt Date: 20131114
  Transmission Date: 20140711
  Serious: Yes (Hospitalization)
  Sender: FDA-Public Use
  Company Number: CH-TEVA-443733ISR

PATIENT
  Age: 84 Year
  Sex: Female
  Weight: 75 kg

DRUGS (11)
  1. OEDEMEX [Suspect]
     Dosage: 40 MILLIGRAM DAILY;
     Route: 048
  2. SIFROL 0.25MG [Suspect]
     Indication: RESTLESS LEGS SYNDROME
     Dosage: .375 MILLIGRAM DAILY;
     Route: 048
     Dates: end: 20130825
  3. RAMIPRIL ACTAVIS [Concomitant]
     Indication: HYPERTENSION
     Dosage: 2.5 MILLIGRAM DAILY;
     Route: 048
  4. BELOC ZOK [Concomitant]
     Indication: HYPERTENSION
     Dosage: 12.5 MILLIGRAM DAILY;
     Route: 048
  5. GLIMERYL-MEPHA [Concomitant]
     Indication: TYPE 2 DIABETES MELLITUS
     Dosage: 4 MILLIGRAM DAILY;
     Route: 048
  6. METFIN [Concomitant]
     Indication: TYPE 2 DIABETES MELLITUS
     Dosage: 1000 MILLIGRAM DAILY;
     Route: 048
  7. ACIDUM FOLICUM STREULI [Concomitant]
     Indication: HYPOVITAMINOSIS
     Dosage: 5 MILLIGRAM DAILY;
     Route: 048
  8. MAGNESIUM [Concomitant]
     Dosage: 5 MILLIMOL DAILY;
     Route: 048
  9. STILNOX [Concomitant]
     Indication: INSOMNIA
     Dosage: 10 MILLIGRAM DAILY;
     Route: 048
  10. VITARUBIN [Concomitant]
     Indication: VITAMIN B12 DEFICIENCY
     Route: 048
  11. MOVICOL [Concomitant]
     Indication: CONSTIPATION
     Dosage: 250G AS NECESSARY
     Route: 048

REACTIONS (6)
  - Hypothermia [Recovered/Resolved]
  - Hyponatraemia [Recovered/Resolved]
  - Inappropriate antidiuretic hormone secretion [Recovered/Resolved]
  - Altered state of consciousness [Recovered/Resolved]
  - Depressed level of consciousness [Recovered/Resolved]
  - Sedation [Recovered/Resolved]
